FAERS Safety Report 4270546-8 (Version None)
Quarter: 2004Q1

REPORT INFORMATION
  Report Type: 
  Country: None (occurrence: None)
  Receive Date: 20040113
  Receipt Date: 20040113
  Transmission Date: 20041129
  Serious: Yes (Hospitalization)
  Sender: FDA-Public Use
  Company Number: None

PATIENT
  Age: 25 Year
  Sex: Male

DRUGS (2)
  1. OSELTAMIVIR 75 MG [Suspect]
     Indication: INFLUENZA
     Dosage: 75 MG DAILY ORAL
     Route: 048
     Dates: start: 20031211, end: 20031212
  2. OSELTAMIVIR 75 MG [Suspect]
     Indication: PROPHYLAXIS
     Dosage: 75 MG DAILY ORAL
     Route: 048
     Dates: start: 20031211, end: 20031212

REACTIONS (5)
  - DISORIENTATION [None]
  - DYSPNOEA [None]
  - IRRITABILITY [None]
  - MUSCLE TIGHTNESS [None]
  - VISION BLURRED [None]
